FAERS Safety Report 11132943 (Version 1)
Quarter: 2015Q2

REPORT INFORMATION
  Report Type: Spontaneous
  Country: JP (occurrence: JP)
  Receive Date: 20150522
  Receipt Date: 20150522
  Transmission Date: 20150821
  Serious: Yes (Other)
  Sender: FDA-Public Use
  Company Number: PHHY2015JP060741

PATIENT
  Age: 41 Year
  Sex: Female

DRUGS (1)
  1. OCTREOTIDE [Suspect]
     Active Substance: OCTREOTIDE
     Indication: CUSHING^S SYNDROME
     Route: 065

REACTIONS (8)
  - Lipohypertrophy [Unknown]
  - Cushingoid [Unknown]
  - Skin striae [Unknown]
  - Psychotic disorder [Unknown]
  - Condition aggravated [Unknown]
  - Hypertension [Unknown]
  - Hirsutism [Unknown]
  - Off label use [Unknown]
